FAERS Safety Report 4592485-5 (Version None)
Quarter: 2005Q1

REPORT INFORMATION
  Report Type: 
  Country: None (occurrence: None)
  Receive Date: 20050222
  Receipt Date: 20050203
  Transmission Date: 20050727
  Serious: Yes (Hospitalization)
  Sender: FDA-Public Use
  Company Number: 144454

PATIENT
  Age: 48 Year
  Sex: Male
  Weight: 73.9363 kg

DRUGS (10)
  1. AVONEX [Suspect]
     Indication: MULTIPLE SCLEROSIS
     Dosage: 30 UG;QW;IM
     Route: 030
     Dates: start: 19970901, end: 20040101
  2. AVONEX [Suspect]
     Indication: MULTIPLE SCLEROSIS
     Dosage: 30 UG;QW;IM
     Route: 030
     Dates: start: 20040101
  3. NITROCAP [Concomitant]
  4. LIPITOR [Concomitant]
  5. LOPID [Concomitant]
  6. KLONOPIN [Concomitant]
  7. TALWIN [Concomitant]
  8. DILANTIN [Concomitant]
  9. MS CONTIN [Concomitant]
  10. HYDROCODONE [Concomitant]

REACTIONS (2)
  - BLADDER CANCER [None]
  - CONVULSION [None]
